FAERS Safety Report 13133094 (Version 1)
Quarter: 2017Q1

REPORT INFORMATION
  Report Type: Spontaneous
  Country: US (occurrence: US)
  Receive Date: 20170120
  Receipt Date: 20170120
  Transmission Date: 20170428
  Serious: No
  Sender: FDA-Public Use
  Company Number: US-TEVA-648569USA

PATIENT
  Sex: Female
  Weight: 57.66 kg

DRUGS (1)
  1. MIRTAZAPINE. [Suspect]
     Active Substance: MIRTAZAPINE
     Indication: DEPRESSION
     Dates: end: 201603

REACTIONS (2)
  - Nausea [Recovered/Resolved]
  - Muscle spasms [Recovered/Resolved]
